FAERS Safety Report 20532419 (Version 1)
Quarter: 2022Q1

REPORT INFORMATION
  Report Type: Spontaneous
  Country: US (occurrence: None)
  Receive Date: 20220228
  Receipt Date: 20220228
  Transmission Date: 20220423
  Serious: Yes (Life-Threatening)
  Sender: FDA-Public Use
  Company Number: None

PATIENT
  Age: 50 Year
  Sex: Female
  Weight: 109.35 kg

DRUGS (5)
  1. TRUXIMA [Suspect]
     Active Substance: RITUXIMAB-ABBS
     Indication: Immunoglobulin G4 related disease
     Dosage: OTHER FREQUENCY : AT DAY 0 AND 14;?
     Route: 042
  2. Truxima 1000mg [Concomitant]
     Dates: start: 20220228, end: 20220228
  3. Tylenol 1000mg [Concomitant]
     Dates: start: 20220228, end: 20220228
  4. Benadryl 25mg IVP [Concomitant]
     Dates: start: 20220228, end: 20220228
  5. Solumedrol 100mg IVP [Concomitant]
     Dates: start: 20220228, end: 20220228

REACTIONS (6)
  - Rhinorrhoea [None]
  - Cough [None]
  - Throat tightness [None]
  - Dyspnoea [None]
  - Angioedema [None]
  - Infusion related reaction [None]

NARRATIVE: CASE EVENT DATE: 20220228
